FAERS Safety Report 21752302 (Version 1)
Quarter: 2022Q4

REPORT INFORMATION
  Report Type: Report from Study
  Country: IT (occurrence: IT)
  Receive Date: 20221220
  Receipt Date: 20221220
  Transmission Date: 20230113
  Serious: Yes (Other)
  Sender: FDA-Public Use
  Company Number: IT-ALNYLAM PHARMACEUTICALS, INC.-ALN-2022-004583

PATIENT

DRUGS (4)
  1. GIVLAARI [Suspect]
     Active Substance: GIVOSIRAN SODIUM
     Indication: Porphyria acute
     Dosage: 2.5 MILLIGRAM/KILOGRAM (162.5MG/ 0.86ML), MONTHLY
     Route: 058
     Dates: start: 202005
  2. GIVLAARI [Suspect]
     Active Substance: GIVOSIRAN SODIUM
     Dosage: 2.5 MILLIGRAM/KILOGRAM (162.5MG/ 0.86ML), MONTHLY
     Route: 058
     Dates: start: 20220919
  3. FLUOXETINE HYDROCHLORIDE [Concomitant]
     Active Substance: FLUOXETINE HYDROCHLORIDE
     Indication: Product used for unknown indication
     Dosage: UNK
     Route: 065
  4. NORMOCIS [Concomitant]
     Indication: Product used for unknown indication
     Dosage: 400 MILLIGRAM, QD
     Route: 065

REACTIONS (1)
  - Medical device site injury [Recovered/Resolved]

NARRATIVE: CASE EVENT DATE: 20221001
